FAERS Safety Report 19252128 (Version 1)
Quarter: 2021Q2

REPORT INFORMATION
  Report Type: Spontaneous
  Country: US (occurrence: US)
  Receive Date: 20210512
  Receipt Date: 20210512
  Transmission Date: 20210717
  Serious: No
  Sender: FDA-Public Use
  Company Number: None

PATIENT
  Age: 64 Year
  Sex: Female

DRUGS (1)
  1. AMBRISENTAN 5MG TALBETS 30/BO: 5MG [Suspect]
     Active Substance: AMBRISENTAN
     Indication: PULMONARY HYPERTENSION
     Route: 048
     Dates: start: 20210428, end: 20210512

REACTIONS (4)
  - Swelling [None]
  - Fluid retention [None]
  - Weight increased [None]
  - Therapy cessation [None]

NARRATIVE: CASE EVENT DATE: 20210512
